FAERS Safety Report 24103598 (Version 1)
Quarter: 2024Q3

REPORT INFORMATION
  Report Type: Spontaneous
  Country: US (occurrence: US)
  Receive Date: 20240717
  Receipt Date: 20240717
  Transmission Date: 20241016
  Serious: No
  Sender: ROCHE
  Company Number: US-ROCHE-10000024647

PATIENT

DRUGS (1)
  1. XOLAIR [Suspect]
     Active Substance: OMALIZUMAB
     Indication: Product used for unknown indication
     Route: 065

REACTIONS (8)
  - Furuncle [Unknown]
  - Insomnia [Unknown]
  - Gastrointestinal disorder [Unknown]
  - Urticaria [Unknown]
  - Scar [Unknown]
  - Temperature intolerance [Unknown]
  - Syncope [Unknown]
  - Urticaria [Unknown]
